FAERS Safety Report 7197553-X (Version None)
Quarter: 2010Q4

REPORT INFORMATION
  Report Type: 
  Country: None (occurrence: None)
  Receive Date: 20101213
  Receipt Date: 20101129
  Transmission Date: 20110411
  Serious: Yes (Hospitalization, Other)
  Sender: FDA-Public Use
  Company Number: 1000017641

PATIENT
  Age: 46 Year
  Sex: Female

DRUGS (7)
  1. CITALOPRAM (CITALOPRAM HYDROBROMIDE) [Suspect]
     Indication: DEPRESSION
     Dosage: 60 MG (60 MG, 1 IN 1 D);
  2. PROMETHAZINE [Concomitant]
  3. LORAZEPAM [Concomitant]
  4. BROTIZOLAM [Concomitant]
  5. LEVOTHYROXINE SODIUM [Concomitant]
  6. CAPTOPRIL AND HYDROCHLOROTHIAZIDE [Concomitant]
  7. METOPROLOL [Concomitant]

REACTIONS (2)
  - RESTLESSNESS [None]
  - SUICIDE ATTEMPT [None]
